FAERS Safety Report 5479437-8 (Version None)
Quarter: 2007Q4

REPORT INFORMATION
  Report Type: 
  Country: None (occurrence: None)
  Receive Date: 20071008
  Receipt Date: 20071001
  Transmission Date: 20080405
  Serious: Yes (Hospitalization)
  Sender: FDA-Public Use
  Company Number: PHEH2007US13067

PATIENT

DRUGS (1)
  1. EXELON PATCH [Suspect]
     Route: 062

REACTIONS (2)
  - RENAL FAILURE [None]
  - SHOCK [None]
